FAERS Safety Report 13423506 (Version 3)
Quarter: 2018Q3

REPORT INFORMATION
  Report Type: Report from Study
  Country: FR (occurrence: FR)
  Receive Date: 20170410
  Receipt Date: 20180806
  Transmission Date: 20181010
  Serious: Yes (Death, Hospitalization, Other)
  Sender: FDA-Public Use
  Company Number: PHHY2017FR053979

PATIENT
  Age: 60 Year
  Sex: Female

DRUGS (1)
  1. GILENYA [Suspect]
     Active Substance: FINGOLIMOD HYDROCHLORIDE
     Indication: MULTIPLE SCLEROSIS
     Dosage: 0.5 MG, UNK
     Route: 048
     Dates: start: 20141030, end: 20170401

REACTIONS (2)
  - Lung adenocarcinoma stage IV [Fatal]
  - Lung disorder [Recovering/Resolving]

NARRATIVE: CASE EVENT DATE: 20170320
